FAERS Safety Report 8760319 (Version 1)
Quarter: 2012Q4

REPORT INFORMATION
  Report Type: Spontaneous
  Country: US (occurrence: None)
  Receive Date: 20120829
  Receipt Date: 20120829
  Transmission Date: 20130627
  Serious: Yes (Hospitalization)
  Sender: FDA-Public Use
  Company Number: None

PATIENT
  Age: 62 Year
  Sex: Male
  Weight: 77.5 kg

DRUGS (2)
  1. CARFILZOMIB [Suspect]
     Route: 041
  2. LENALIDOMIDE [Suspect]
     Route: 048

REACTIONS (2)
  - Cardiac failure congestive [None]
  - Condition aggravated [None]
